FAERS Safety Report 8590654 (Version 4)
Quarter: 2013Q1

REPORT INFORMATION
  Report Type: Spontaneous
  Country: US (occurrence: US)
  Receive Date: 20120601
  Receipt Date: 20130109
  Transmission Date: 20140127
  Serious: Yes (Death)
  Sender: FDA-Public Use
  Company Number: US-ROCHE-1074031

PATIENT
  Age: 92 Year
  Sex: Female

DRUGS (5)
  1. LUCENTIS [Suspect]
     Indication: AGE-RELATED MACULAR DEGENERATION
     Route: 050
     Dates: start: 20110927, end: 20120522
  2. DIOVAN [Concomitant]
     Route: 048
  3. ESTRACE [Concomitant]
     Route: 067
  4. NITROSTAT [Concomitant]
     Dosage: AS REQUIRED
     Route: 058
  5. ZOLPIDEM [Concomitant]
     Route: 048

REACTIONS (4)
  - Myocardial infarction [Fatal]
  - Congenital aortic atresia [Fatal]
  - Cardiac failure congestive [Fatal]
  - Acute respiratory failure [Fatal]
